FAERS Safety Report 9798672 (Version 2)
Quarter: 2015Q3

REPORT INFORMATION
  Report Type: Spontaneous
  Country: US (occurrence: US)
  Receive Date: 20140106
  Receipt Date: 20150806
  Transmission Date: 20151125
  Serious: No
  Sender: FDA-Public Use
  Company Number: US-GILEAD-2010-0029718

PATIENT
  Age: 53 Year
  Sex: Female

DRUGS (1)
  1. LETAIRIS [Suspect]
     Active Substance: AMBRISENTAN
     Indication: PULMONARY ARTERIAL HYPERTENSION
     Route: 048
     Dates: start: 20100527, end: 20100602

REACTIONS (5)
  - Nasal oedema [Unknown]
  - Panic reaction [Unknown]
  - Oropharyngeal pain [Unknown]
  - Dry throat [Unknown]
  - Dyspnoea [Unknown]
